FAERS Safety Report 25742462 (Version 1)
Quarter: 2025Q3

REPORT INFORMATION
  Report Type: Spontaneous
  Country: US (occurrence: US)
  Receive Date: 20250829
  Receipt Date: 20250829
  Transmission Date: 20251020
  Serious: Yes (Death)
  Sender: AMGEN
  Company Number: US-AMGEN-USASP2025166128

PATIENT
  Age: 58 Year
  Sex: Male

DRUGS (2)
  1. RITUXIMAB [Suspect]
     Active Substance: RITUXIMAB
     Indication: Vasculitis
     Route: 065
  2. METHYLPREDNISOLONE [Concomitant]
     Active Substance: METHYLPREDNISOLONE
     Dosage: 48 MILLIGRAM, QD, HIGH DOSE
     Route: 040

REACTIONS (2)
  - Cardio-respiratory arrest [Fatal]
  - Off label use [Unknown]
